FAERS Safety Report 4369099-5 (Version None)
Quarter: 2004Q2

REPORT INFORMATION
  Report Type: 
  Country: None (occurrence: None)
  Receive Date: 20040528
  Receipt Date: 20040520
  Transmission Date: 20050107
  Serious: Yes (Other)
  Sender: FDA-Public Use
  Company Number: 2004214443CA

PATIENT
  Age: 31 Year
  Sex: Female
  Weight: 67.1 kg

DRUGS (2)
  1. DEPO-PROVERA [Suspect]
     Indication: CONVULSION
     Dosage: 150 MG/10 3 WEEKS(1ST INJ), INTRAMUSCULAR
     Route: 030
     Dates: start: 20030418, end: 20030418
  2. DEPO-PROVERA [Suspect]
     Indication: CONVULSION
     Dosage: 150 MG/10 3 WEEKS(1ST INJ), INTRAMUSCULAR
     Route: 030
     Dates: start: 20040319, end: 20040319

REACTIONS (5)
  - ABDOMINAL PAIN [None]
  - CERVIX DISORDER [None]
  - CONVULSION [None]
  - METRORRHAGIA [None]
  - WEIGHT INCREASED [None]
